FAERS Safety Report 12120379 (Version 1)
Quarter: 2016Q1

REPORT INFORMATION
  Report Type: Not Available
  Country: JP (occurrence: JP)
  Receive Date: 20160226
  Receipt Date: 20160226
  Transmission Date: 20160608
  Serious: Yes (Other)
  Sender: FDA-Public Use
  Company Number: US-AKORN-7640

PATIENT
  Age: 47 Year
  Sex: Female

DRUGS (1)
  1. ZIOPTAN [Suspect]
     Active Substance: TAFLUPROST

REACTIONS (11)
  - Hypersensitivity [Unknown]
  - Keloid scar [Unknown]
  - Sleep disorder [Unknown]
  - Cystitis [Unknown]
  - Abdominal discomfort [Unknown]
  - Glaucoma [Unknown]
  - Seasonal allergy [Unknown]
  - Gastroenteritis [Unknown]
  - Malaise [Unknown]
  - Gastric cancer [Unknown]
  - Back pain [Unknown]
